FAERS Safety Report 5832625-0 (Version None)
Quarter: 2008Q3

REPORT INFORMATION
  Report Type: 
  Country: None (occurrence: None)
  Receive Date: 20080804
  Receipt Date: 20080725
  Transmission Date: 20090109
  Serious: Yes (Other)
  Sender: FDA-Public Use
  Company Number: PHEH2008US06080

PATIENT
  Sex: Female
  Weight: 59.41 kg

DRUGS (3)
  1. TEKTURNA [Suspect]
     Indication: HYPERTENSION
     Dosage: 150 MG, UNK
     Route: 048
     Dates: start: 20071113
  2. LASIX [Concomitant]
     Indication: HYPERTENSION
     Dosage: 40 MG, UNK
     Dates: start: 20071123
  3. LASIX [Concomitant]
     Indication: CARDIAC FAILURE CONGESTIVE

REACTIONS (8)
  - BIOPSY KIDNEY [None]
  - BLOOD UREA INCREASED [None]
  - BLOOD URINE [None]
  - FLANK PAIN [None]
  - NECROSIS [None]
  - PROTEIN URINE [None]
  - RENAL CELL CARCINOMA [None]
  - RENAL MASS [None]
